FAERS Safety Report 8593101-8 (Version None)
Quarter: 2012Q3

REPORT INFORMATION
  Report Type: 
  Country: None (occurrence: None)
  Receive Date: 20120814
  Receipt Date: 20120807
  Transmission Date: 20120928
  Serious: Yes (Other)
  Sender: FDA-Public Use
  Company Number: CA-JNJFOC-20120804166

PATIENT
  Sex: Male

DRUGS (4)
  1. METOCLOPRAMIDE [Concomitant]
     Route: 048
  2. METHOTREXATE [Concomitant]
     Route: 048
  3. FOLIC ACID [Concomitant]
     Route: 048
  4. REMICADE [Suspect]
     Indication: CROHN'S DISEASE
     Route: 042
     Dates: start: 20081101

REACTIONS (2)
  - INTESTINAL RESECTION [None]
  - WISDOM TEETH REMOVAL [None]
